FAERS Safety Report 8234818-4 (Version None)
Quarter: 2012Q1

REPORT INFORMATION
  Report Type: 
  Country: None (occurrence: None)
  Receive Date: 20120322
  Receipt Date: 20120314
  Transmission Date: 20120608
  Serious: Yes (Death)
  Sender: FDA-Public Use
  Company Number: DKLU1077680

PATIENT
  Age: 2 Year
  Sex: Male

DRUGS (16)
  1. CYTARABINE [Suspect]
     Indication: BURKITT'S LYMPHOMA
     Dosage: INTRATHECAL
     Route: 037
  2. CYTARABINE [Suspect]
     Indication: DIFFUSE LARGE B-CELL LYMPHOMA
     Dosage: INTRATHECAL
     Route: 037
  3. ELSPAR [Suspect]
     Indication: DIFFUSE LARGE B-CELL LYMPHOMA
  4. ELSPAR [Suspect]
     Indication: BURKITT'S LYMPHOMA
  5. PREDNISONE TAB [Suspect]
     Indication: DIFFUSE LARGE B-CELL LYMPHOMA
  6. PREDNISONE TAB [Suspect]
     Indication: BURKITT'S LYMPHOMA
  7. VINCRISTINE [Suspect]
     Indication: BURKITT'S LYMPHOMA
  8. VINCRISTINE [Suspect]
     Indication: DIFFUSE LARGE B-CELL LYMPHOMA
  9. CYCLOPHOSPHAMIDE [Suspect]
     Indication: BURKITT'S LYMPHOMA
  10. CYCLOPHOSPHAMIDE [Suspect]
     Indication: DIFFUSE LARGE B-CELL LYMPHOMA
  11. ADRIAMYCIN PFS [Suspect]
     Indication: DIFFUSE LARGE B-CELL LYMPHOMA
  12. ADRIAMYCIN PFS [Suspect]
     Indication: BURKITT'S LYMPHOMA
  13. DAUNORUBICIN HCL [Suspect]
     Indication: BURKITT'S LYMPHOMA
  14. DAUNORUBICIN HCL [Suspect]
     Indication: DIFFUSE LARGE B-CELL LYMPHOMA
  15. METHOTREXATE [Suspect]
     Indication: DIFFUSE LARGE B-CELL LYMPHOMA
     Dosage: INTRATHECAL
     Route: 037
  16. METHOTREXATE [Suspect]
     Indication: BURKITT'S LYMPHOMA
     Dosage: INTRATHECAL
     Route: 037

REACTIONS (1)
  - SEPSIS [None]
